FAERS Safety Report 25552147 (Version 2)
Quarter: 2025Q3

REPORT INFORMATION
  Report Type: Spontaneous
  Country: EU (occurrence: EU)
  Receive Date: 20250715
  Receipt Date: 20250805
  Transmission Date: 20251021
  Serious: Yes (Hospitalization)
  Sender: ABBVIE
  Company Number: EU-ABBVIE-6369082

PATIENT
  Age: 72 Year
  Sex: Male

DRUGS (1)
  1. FOSCARBIDOPA\FOSLEVODOPA [Suspect]
     Active Substance: FOSCARBIDOPA\FOSLEVODOPA
     Indication: Parkinson^s disease
     Route: 058
     Dates: start: 20250519

REACTIONS (11)
  - Puncture site abscess [Recovering/Resolving]
  - Infusion site erythema [Unknown]
  - Infusion site induration [Unknown]
  - Infusion site pain [Unknown]
  - Blood creatinine decreased [Unknown]
  - Alanine aminotransferase decreased [Unknown]
  - C-reactive protein increased [Unknown]
  - Red blood cell count decreased [Unknown]
  - Haemoglobin decreased [Unknown]
  - Haematocrit decreased [Unknown]
  - Urobilinogen urine increased [Unknown]

NARRATIVE: CASE EVENT DATE: 20250101
